FAERS Safety Report 23383322 (Version 2)
Quarter: 2024Q2

REPORT INFORMATION
  Report Type: Spontaneous
  Country: US (occurrence: US)
  Receive Date: 20240109
  Receipt Date: 20240513
  Transmission Date: 20240716
  Serious: No
  Sender: FDA-Public Use
  Company Number: US-SA-SAC20231228000878

PATIENT
  Age: 59 Year
  Sex: Female
  Weight: 78.01 kg

DRUGS (2)
  1. DUPIXENT [Suspect]
     Active Substance: DUPILUMAB
     Indication: Asthma
     Dosage: 300 MG, QOW
     Route: 058
     Dates: start: 20231122
  2. DUPIXENT [Suspect]
     Active Substance: DUPILUMAB
     Indication: Nasal polyps

REACTIONS (16)
  - Fatigue [Unknown]
  - Cough [Unknown]
  - Epistaxis [Unknown]
  - Facial pain [Unknown]
  - Drug hypersensitivity [Unknown]
  - Eye irritation [Unknown]
  - Throat irritation [Unknown]
  - Stomatitis [Unknown]
  - Paranasal sinus discomfort [Not Recovered/Not Resolved]
  - Gingival discomfort [Unknown]
  - Pruritus [Unknown]
  - Eye swelling [Unknown]
  - Oral pruritus [Unknown]
  - Throat irritation [Unknown]
  - Condition aggravated [Unknown]
  - Oropharyngeal pain [Not Recovered/Not Resolved]

NARRATIVE: CASE EVENT DATE: 20231124
